FAERS Safety Report 10209898 (Version 4)
Quarter: 2015Q1

REPORT INFORMATION
  Report Type: Spontaneous
  Country: US (occurrence: US)
  Receive Date: 20140602
  Receipt Date: 20150109
  Transmission Date: 20150720
  Serious: Yes (Death, Hospitalization, Other)
  Sender: FDA-Public Use
  Company Number: US-SA-2014SA016340

PATIENT
  Age: 63 Year
  Sex: Male
  Weight: 63.5 kg

DRUGS (2)
  1. FABRAZYME [Suspect]
     Active Substance: AGALSIDASE BETA
     Indication: FABRY^S DISEASE
     Route: 041
     Dates: start: 20121123, end: 20141222
  2. FABRAZYME [Suspect]
     Active Substance: AGALSIDASE BETA
     Indication: FABRY^S DISEASE
     Route: 041
     Dates: start: 20121123, end: 20141222

REACTIONS (7)
  - Fall [Unknown]
  - Fall [Unknown]
  - Death [Fatal]
  - Amnesia [Unknown]
  - Petit mal epilepsy [Not Recovered/Not Resolved]
  - Disorientation [Not Recovered/Not Resolved]
  - Hip fracture [Not Recovered/Not Resolved]

NARRATIVE: CASE EVENT DATE: 201312
